FAERS Safety Report 8444866-7 (Version None)
Quarter: 2012Q2

REPORT INFORMATION
  Report Type: 
  Country: None (occurrence: None)
  Receive Date: 20120618
  Receipt Date: 20120614
  Transmission Date: 20120825
  Serious: Yes (Hospitalization, Other)
  Sender: FDA-Public Use
  Company Number: PHHO2012IT007970

PATIENT
  Sex: Male
  Weight: 68 kg

DRUGS (9)
  1. PLACEBO [Suspect]
     Indication: CARDIOVASCULAR EVENT PROPHYLAXIS
     Dosage: CODE NOT BROKEN
     Route: 058
     Dates: start: 20120117
  2. ILARIS [Suspect]
     Indication: CARDIOVASCULAR EVENT PROPHYLAXIS
     Dosage: CODE NOT BROKEN
     Route: 058
     Dates: start: 20120117
  3. BLINDED NO TREATMENT RECEIVED [Suspect]
     Indication: CARDIOVASCULAR EVENT PROPHYLAXIS
     Dosage: CODE NOT BROKEN
     Route: 058
     Dates: start: 20120117
  4. BISOPROLOL FUMARATE [Concomitant]
     Indication: CARDIAC FAILURE
     Dosage: 10 MG, QD
     Route: 048
     Dates: start: 20120209
  5. ASPIRIN [Concomitant]
     Indication: MYOCARDIAL ISCHAEMIA
     Dosage: 100 MG, QD
     Route: 048
     Dates: start: 20100429, end: 20120520
  6. WARFARIN SODIUM [Concomitant]
     Indication: CARDIAC FAILURE
     Dosage: 5 MG, ON DEMAND
     Route: 048
     Dates: start: 20100429
  7. FUROSEMIDE [Concomitant]
     Indication: CARDIAC FAILURE
     Dosage: 125 MG (DAY) AND 250 MG (EVENING)
     Route: 048
     Dates: start: 20120310
  8. RAMIPRIL [Concomitant]
     Indication: CARDIAC FAILURE
     Dosage: 2.5 MG, BID
     Route: 048
     Dates: start: 20110701
  9. INSULIN [Concomitant]
     Indication: TYPE 2 DIABETES MELLITUS
     Dosage: ON DEMAND
     Route: 058
     Dates: start: 20120209

REACTIONS (3)
  - SYNCOPE [None]
  - INJURY [None]
  - SALMONELLOSIS [None]
